FAERS Safety Report 6098242-5 (Version None)
Quarter: 2009Q1

REPORT INFORMATION
  Report Type: 
  Country: None (occurrence: None)
  Receive Date: 20090227
  Receipt Date: 20090221
  Transmission Date: 20090719
  Serious: Yes (Other)
  Sender: FDA-Public Use
  Company Number: US-AMGEN-QUU335080

PATIENT
  Sex: Male

DRUGS (1)
  1. ENBREL [Suspect]
     Indication: DRUG USE FOR UNKNOWN INDICATION
     Route: 058

REACTIONS (4)
  - BLOOD PRESSURE INCREASED [None]
  - FLUID RETENTION [None]
  - PROSTATITIS [None]
  - URINARY TRACT OBSTRUCTION [None]
